FAERS Safety Report 8458388-0 (Version None)
Quarter: 2012Q2

REPORT INFORMATION
  Report Type: 
  Country: None (occurrence: None)
  Receive Date: 20120615
  Receipt Date: 20120604
  Transmission Date: 20120825
  Serious: Yes (Hospitalization)
  Sender: FDA-Public Use
  Company Number: 2012FR0126

PATIENT
  Sex: Male

DRUGS (3)
  1. ORFADIN [Suspect]
     Indication: TYROSINAEMIA
     Dosage: 30 MG (30 MG,1 IN 1 D) PER ORAL
     Route: 048
     Dates: start: 20110601, end: 20110808
  2. TARGOCID [Concomitant]
  3. AUGMENTIN '125' [Concomitant]

REACTIONS (3)
  - HEPATIC CIRRHOSIS [None]
  - LIVER TRANSPLANT [None]
  - HEPATIC NEOPLASM MALIGNANT [None]
